FAERS Safety Report 4644076-5 (Version None)
Quarter: 2005Q2

REPORT INFORMATION
  Report Type: 
  Country: None (occurrence: None)
  Receive Date: 20050425
  Receipt Date: 20050417
  Transmission Date: 20051028
  Serious: Yes (Other)
  Sender: FDA-Public Use
  Company Number: PHEH2005US04454

PATIENT
  Sex: Male

DRUGS (2)
  1. DIOVAN [Suspect]
     Indication: VENTRICULAR HYPERTROPHY
     Dosage: UNK, UNK
     Dates: start: 20050301
  2. ANTIGLAUCOMA PREPARATIONS AND MIOTICS [Concomitant]

REACTIONS (1)
  - INTRAOCULAR PRESSURE INCREASED [None]
